FAERS Safety Report 9313712 (Version 1)
Quarter: 2013Q2

REPORT INFORMATION
  Report Type: Spontaneous
  Country: JP (occurrence: JP)
  Receive Date: 20130529
  Receipt Date: 20130529
  Transmission Date: 20140414
  Serious: Yes (Hospitalization)
  Sender: FDA-Public Use
  Company Number: JP-AMGEN-JPNSP2013037807

PATIENT
  Age: 8 Decade
  Sex: Female
  Weight: 60 kg

DRUGS (16)
  1. VECTIBIX [Suspect]
     Indication: RECTAL CANCER
     Dosage: 400 MG, Q2WK
     Route: 041
     Dates: start: 20120312, end: 20120409
  2. VECTIBIX [Suspect]
     Dosage: 400 MG, Q2WK
     Route: 041
     Dates: start: 20120514, end: 20120514
  3. VECTIBIX [Suspect]
     Dosage: 400 MG, Q2WK
     Route: 041
     Dates: start: 20120611, end: 20120611
  4. DEXART [Concomitant]
     Dosage: UNK
     Route: 042
  5. POLARAMINE [Concomitant]
     Dosage: UNK
     Route: 042
  6. HEPAFLUSH [Concomitant]
     Dosage: UNK
     Route: 042
  7. AMLODIPINE [Concomitant]
     Dosage: UNK
     Route: 048
  8. DIOVAN [Concomitant]
     Dosage: UNK
     Route: 048
  9. LASIX                              /00032601/ [Concomitant]
     Dosage: UNK
     Route: 048
  10. PHOSBIRON [Concomitant]
     Dosage: UNK
     Route: 042
  11. RINDERON                           /00008502/ [Concomitant]
     Dosage: UNK
     Route: 042
  12. DONEPEZIL HYDROCHLORIDE [Concomitant]
     Dosage: UNK
     Route: 048
  13. FORIMEZIN [Concomitant]
     Dosage: UNK
     Route: 048
  14. DIFENIDOL HYDROCHLORIDE [Concomitant]
     Dosage: UNK
     Route: 048
  15. SALUMOSIN [Concomitant]
     Dosage: UNK
     Route: 048
  16. MEVARICH [Concomitant]
     Dosage: UNK
     Route: 048

REACTIONS (8)
  - Malaise [Unknown]
  - Eczema [Unknown]
  - Decreased appetite [Unknown]
  - Dyspnoea [Unknown]
  - Dermatitis acneiform [Unknown]
  - Pruritus [Unknown]
  - Dry skin [Unknown]
  - Paronychia [Unknown]
